FAERS Safety Report 17126041 (Version 2)
Quarter: 2020Q1

REPORT INFORMATION
  Report Type: Spontaneous
  Country: CR (occurrence: CR)
  Receive Date: 20191209
  Receipt Date: 20200103
  Transmission Date: 20200409
  Serious: Yes (Other)
  Sender: FDA-Public Use
  Company Number: CR-ROCHE-2488920

PATIENT
  Age: 68 Year
  Sex: Male

DRUGS (3)
  1. ESOMEPRAZOLE. [Concomitant]
     Active Substance: ESOMEPRAZOLE MAGNESIUM
     Dosage: FOR 10 DAYS
     Route: 065
  2. ENTEROGERMINA [BACILLUS CLAUSII] [Concomitant]
     Dosage: 1 AMPOULE PER DAY FOR 10 DAYS
     Route: 065
  3. CELLCEPT [Suspect]
     Active Substance: MYCOPHENOLATE MOFETIL\MYCOPHENOLATE MOFETIL HYDROCHLORIDE
     Indication: UVEITIS
     Route: 065
     Dates: start: 2013

REACTIONS (7)
  - Oral disorder [Unknown]
  - Intentional product use issue [Unknown]
  - Dry skin [Unknown]
  - Colitis [Unknown]
  - Meningitis [Unknown]
  - Skin exfoliation [Unknown]
  - Off label use [Unknown]
